FAERS Safety Report 6898094-7 (Version None)
Quarter: 2010Q3

REPORT INFORMATION
  Report Type: 
  Country: None (occurrence: None)
  Receive Date: 20100802
  Receipt Date: 20070915
  Transmission Date: 20110219
  Serious: Yes (Other)
  Sender: FDA-Public Use
  Company Number: US-PFIZER INC-2007065066

PATIENT
  Age: 40 Year
  Sex: Female

DRUGS (5)
  1. LYRICA [Suspect]
     Indication: PAIN
     Dosage: 200-300 MG IN TWO DOSES FOR ONE MONTH
  2. ZYPREXA [Concomitant]
  3. SEROQUEL [Concomitant]
  4. OXYBUTYNIN CHLORIDE [Concomitant]
  5. ULTRAM [Concomitant]

REACTIONS (2)
  - OEDEMA [None]
  - WEIGHT INCREASED [None]
